FAERS Safety Report 25904294 (Version 2)
Quarter: 2025Q4

REPORT INFORMATION
  Report Type: Spontaneous
  Country: EU (occurrence: EU)
  Receive Date: 20251010
  Receipt Date: 20251112
  Transmission Date: 20260117
  Serious: Yes (Other)
  Sender: BEIGENE
  Company Number: None

PATIENT
  Age: 76 Year
  Weight: 55 kg

DRUGS (4)
  1. BRUKINSA [Suspect]
     Active Substance: ZANUBRUTINIB
     Indication: Waldenstrom^s macroglobulinaemia
     Dosage: 80 MILLIGRAM, QD
  2. BRUKINSA [Suspect]
     Active Substance: ZANUBRUTINIB
     Dosage: 80 MILLIGRAM, QD
     Route: 048
  3. BRUKINSA [Suspect]
     Active Substance: ZANUBRUTINIB
     Dosage: 80 MILLIGRAM, QD
     Route: 048
  4. BRUKINSA [Suspect]
     Active Substance: ZANUBRUTINIB
     Dosage: 80 MILLIGRAM, QD

REACTIONS (1)
  - Spinal fracture [Not Recovered/Not Resolved]
